FAERS Safety Report 6242124-2 (Version None)
Quarter: 2009Q2

REPORT INFORMATION
  Report Type: 
  Country: None (occurrence: None)
  Receive Date: 20090622
  Receipt Date: 20090622
  Transmission Date: 20091009
  Serious: Yes (Life-Threatening)
  Sender: FDA-Public Use
  Company Number: None

PATIENT
  Sex: Female
  Weight: 71.2147 kg

DRUGS (10)
  1. CARIMUNE NF [Suspect]
     Indication: CHRONIC LYMPHOCYTIC LEUKAEMIA
     Dosage: 30 GM Q 3-4 WKS IV
     Route: 042
     Dates: start: 20080101, end: 20090101
  2. CARIMUNE NF [Suspect]
     Indication: IMMUNODEFICIENCY
     Dosage: 30 GM Q 3-4 WKS IV
     Route: 042
     Dates: start: 20080101, end: 20090101
  3. FAMVIR [Concomitant]
  4. CAMPATH [Concomitant]
  5. PENTAMIDINE NEB [Concomitant]
  6. PROBIOTICS (FLORASTOR) [Concomitant]
  7. IMODIUM [Concomitant]
  8. FOSAMAX [Concomitant]
  9. CALCIUM GLUCONATE [Concomitant]
  10. MILK THISTLE [Concomitant]

REACTIONS (2)
  - HEPATITIS C [None]
  - NEUTROPENIA [None]
